FAERS Safety Report 6472740-4 (Version None)
Quarter: 2009Q4

REPORT INFORMATION
  Report Type: 
  Country: None (occurrence: None)
  Receive Date: 20091201
  Receipt Date: 20091118
  Transmission Date: 20100525
  Serious: Yes (Other)
  Sender: FDA-Public Use
  Company Number: 2009EU003823

PATIENT
  Age: 21 Year
  Sex: Female
  Weight: 88.9 kg

DRUGS (7)
  1. PROGRAF [Suspect]
     Indication: TRANSPLANT
     Dosage: 40 MG, TOTAL DOSE, ORAL; 2 MG, BID, ORAL
     Route: 048
     Dates: start: 20071201
  2. PROGRAF [Suspect]
     Indication: TRANSPLANT
     Dosage: 40 MG, TOTAL DOSE, ORAL; 2 MG, BID, ORAL
     Route: 048
     Dates: start: 20090925
  3. MYCOPHENOLATE MOFETIL [Suspect]
     Indication: TRANSPLANT
     Dosage: 20 G, TOTAL DOSE, ORAL;  1 G, BID, ORAL
     Route: 048
     Dates: start: 20071201
  4. MYCOPHENOLATE MOFETIL [Suspect]
     Indication: TRANSPLANT
     Dosage: 20 G, TOTAL DOSE, ORAL;  1 G, BID, ORAL
     Route: 048
     Dates: start: 20090925
  5. AMLODIPINE (AMLODIPINE MESILATE) [Concomitant]
  6. ASPIRIN [Concomitant]
  7. DOXAZOSIN (DOXAZOSIN MESILATE) [Concomitant]

REACTIONS (2)
  - BLOOD CREATININE INCREASED [None]
  - OVERDOSE [None]
